FAERS Safety Report 8525462-X (Version None)
Quarter: 2012Q3

REPORT INFORMATION
  Report Type: 
  Country: None (occurrence: None)
  Receive Date: 20120720
  Receipt Date: 20120711
  Transmission Date: 20120928
  Serious: Yes (Other)
  Sender: FDA-Public Use
  Company Number: US-CELGENEUS-163-21880-12071665

PATIENT
  Sex: Male

DRUGS (3)
  1. REVLIMID [Suspect]
     Dosage: 11.25 MILLIGRAM
     Route: 048
     Dates: start: 20091201
  2. REVLIMID [Suspect]
     Dosage: 7.5 MILLIGRAM
     Route: 048
     Dates: start: 20110201
  3. REVLIMID [Suspect]
     Indication: MULTIPLE MYELOMA
     Dosage: 3.75 MILLIGRAM
     Route: 048
     Dates: start: 20090421

REACTIONS (1)
  - CHOLELITHIASIS [None]
